FAERS Safety Report 5509689-7 (Version None)
Quarter: 2007Q4

REPORT INFORMATION
  Report Type: 
  Country: None (occurrence: None)
  Receive Date: 20071107
  Receipt Date: 20071107
  Transmission Date: 20080405
  Serious: Yes (Other)
  Sender: FDA-Public Use
  Company Number: None

PATIENT
  Age: 57 Year
  Sex: Female
  Weight: 96.1626 kg

DRUGS (2)
  1. CYMBALTA [Suspect]
     Indication: BACK PAIN
     Dosage: 90 MG ONCE DAILY PO
     Route: 048
     Dates: start: 20070713, end: 20071005
  2. CYMBALTA [Suspect]
     Indication: NEURALGIA
     Dosage: 90 MG ONCE DAILY PO
     Route: 048
     Dates: start: 20070713, end: 20071005

REACTIONS (1)
  - BLOOD GLUCOSE INCREASED [None]
